FAERS Safety Report 5592132-X (Version None)
Quarter: 2007Q4

REPORT INFORMATION
  Report Type: 
  Country: None (occurrence: None)
  Receive Date: 20071217
  Receipt Date: 20071115
  Transmission Date: 20080405
  Serious: No
  Sender: FDA-Public Use
  Company Number: BDI-010591

PATIENT
  Age: 53 Year
  Sex: Female

DRUGS (1)
  1. MULTIHANCE [Suspect]
     Indication: DIAGNOSTIC PROCEDURE
     Dosage: 20 ML ONCE IV
     Route: 042
     Dates: start: 20071115, end: 20071115

REACTIONS (4)
  - PARAESTHESIA ORAL [None]
  - SINUS CONGESTION [None]
  - SNEEZING [None]
  - THROAT IRRITATION [None]
